FAERS Safety Report 8092359 (Version 8)
Quarter: 2015Q1

REPORT INFORMATION
  Report Type: Report from Study
  Country: US (occurrence: US)
  Receive Date: 20110816
  Receipt Date: 20150126
  Transmission Date: 20150721
  Serious: Yes (Death, Hospitalization, Other)
  Sender: FDA-Public Use
  Company Number: US-ALEXION-A201101211

PATIENT

DRUGS (3)
  1. SOLIRIS [Suspect]
     Active Substance: ECULIZUMAB
     Indication: PAROXYSMAL NOCTURNAL HAEMOGLOBINURIA
     Dosage: UNK
     Route: 042
     Dates: start: 2011, end: 2011
  2. SOLIRIS [Suspect]
     Active Substance: ECULIZUMAB
     Dosage: 900 MG, QMONTH
     Route: 042
     Dates: end: 201112
  3. SOLIRIS [Suspect]
     Active Substance: ECULIZUMAB
     Dosage: UNK
     Route: 042
     Dates: start: 2011

REACTIONS (9)
  - Thrombocytopenia [Fatal]
  - Pneumonia aspiration [Recovering/Resolving]
  - Platelet transfusion [Unknown]
  - Packed red blood cell transfusion [Recovered/Resolved]
  - Clostridium difficile infection [Recovering/Resolving]
  - Confusional state [Recovering/Resolving]
  - Disease progression [Fatal]
  - Inappropriate schedule of drug administration [Unknown]
  - Acute myeloid leukaemia [Fatal]

NARRATIVE: CASE EVENT DATE: 201108
